FAERS Safety Report 24308939 (Version 1)
Quarter: 2024Q3

REPORT INFORMATION
  Report Type: Spontaneous
  Country: US (occurrence: US)
  Receive Date: 20240911
  Receipt Date: 20240911
  Transmission Date: 20241017
  Serious: No
  Sender: JOHNSON AND JOHNSON
  Company Number: US-JNJFOC-20240873241

PATIENT

DRUGS (1)
  1. MENS ROGAINE EXTRA STRENGTH [Suspect]
     Active Substance: MINOXIDIL
     Indication: Product used for unknown indication
     Route: 061

REACTIONS (5)
  - Seborrhoea [Unknown]
  - Poor quality product administered [Unknown]
  - Product container issue [Unknown]
  - Product physical consistency issue [Unknown]
  - Suspected counterfeit product [Unknown]
